FAERS Safety Report 10143259 (Version 1)
Quarter: 2014Q2

REPORT INFORMATION
  Report Type: Report from Study
  Country: US (occurrence: US)
  Receive Date: 20140430
  Receipt Date: 20140430
  Transmission Date: 20141212
  Serious: Yes (Other)
  Sender: FDA-Public Use
  Company Number: US-SA-2014SA052726

PATIENT
  Age: 47 Year
  Sex: Female

DRUGS (1)
  1. LANTUS SOLOSTAR [Suspect]
     Indication: PRODUCT USED FOR UNKNOWN INDICATION
     Dosage: STARTED 6 YEARS AGO
     Route: 065

REACTIONS (4)
  - Pneumonia [Unknown]
  - Oesophageal achalasia [Unknown]
  - Blood glucose increased [Unknown]
  - Drug dose omission [Unknown]
